FAERS Safety Report 5672553-7 (Version None)
Quarter: 2008Q1

REPORT INFORMATION
  Report Type: 
  Country: None (occurrence: None)
  Receive Date: 20080318
  Receipt Date: 20080318
  Transmission Date: 20080703
  Serious: No
  Sender: FDA-Public Use
  Company Number: None

PATIENT
  Age: 43 Year
  Sex: Male
  Weight: 95.2554 kg

DRUGS (1)
  1. PREDNISONE TAB [Suspect]
     Indication: TRIGEMINAL NEURALGIA
     Dosage: 10MG  6X PER DAY  PO
     Route: 048
     Dates: start: 20060831, end: 20061008

REACTIONS (5)
  - ACTIVITIES OF DAILY LIVING IMPAIRED [None]
  - ARTHRALGIA [None]
  - ARTHROPATHY [None]
  - GAIT DISTURBANCE [None]
  - OSTEONECROSIS [None]
